FAERS Safety Report 11860799 (Version 2)
Quarter: 2015Q4

REPORT INFORMATION
  Report Type: Report from Study
  Country: CN (occurrence: CN)
  Receive Date: 20151222
  Receipt Date: 20151230
  Transmission Date: 20160305
  Serious: Yes (Death, Other)
  Sender: FDA-Public Use
  Company Number: PHHY2015CN167124

PATIENT
  Age: 47 Year
  Sex: Male
  Weight: 178 kg

DRUGS (1)
  1. BICYCLOL [Suspect]
     Active Substance: BICYCLOL
     Indication: TRANSAMINASES INCREASED
     Dosage: 50 MG, TID
     Route: 065
     Dates: start: 20151015, end: 20151108

REACTIONS (3)
  - Gastrointestinal disorder [Unknown]
  - Cardio-respiratory arrest [Fatal]
  - Blood potassium increased [Unknown]

NARRATIVE: CASE EVENT DATE: 20151109
